FAERS Safety Report 8917207 (Version 1)
Quarter: 2012Q4

REPORT INFORMATION
  Report Type: Report from Study
  Country: DE (occurrence: DE)
  Receive Date: 20121120
  Receipt Date: 20121120
  Transmission Date: 20130627
  Serious: Yes (Hospitalization)
  Sender: FDA-Public Use
  Company Number: DE-AMGEN-DEUCT2012073707

PATIENT
  Age: 78 Year
  Sex: Male
  Weight: 76 kg

DRUGS (5)
  1. ETANERCEPT [Suspect]
     Indication: PSORIASIS
     Dosage: 50 mg, qwk
     Dates: start: 20120104, end: 20120730
  2. ETANERCEPT [Suspect]
     Indication: PSORIATIC ARTHROPATHY
     Dosage: UNK
  3. ISOKET [Concomitant]
     Indication: CORONARY ARTERY DISEASE
     Dosage: 20 mg, 2x/day
     Dates: start: 200309
  4. MTX                                /00113801/ [Concomitant]
     Indication: PSORIASIS
     Dosage: 20 mg, weekly
     Route: 048
     Dates: start: 200310
  5. ARCOXIA [Concomitant]
     Indication: PSORIASIS
     Dosage: 90 mg, 1x/day
     Dates: start: 200705

REACTIONS (2)
  - Arthralgia [Unknown]
  - Drug ineffective [Unknown]
